FAERS Safety Report 8802619 (Version 1)
Quarter: 2012Q4

REPORT INFORMATION
  Report Type: 
  Country: US (occurrence: US)
  Receive Date: 20120921
  Receipt Date: 20120921
  Transmission Date: 20130627
  Serious: Yes (Death, Hospitalization)
  Sender: FDA-Public Use
  Company Number: US-ROCHE-1091614

PATIENT
  Sex: Female

DRUGS (2)
  1. AVASTIN [Suspect]
     Indication: OVARIAN CANCER
     Route: 042
     Dates: start: 20061027, end: 20071010
  2. AVASTIN [Suspect]
     Route: 042

REACTIONS (3)
  - Ovarian cancer [Fatal]
  - Cerebrovascular accident [Recovered/Resolved]
  - Hypertension [Recovered/Resolved]
